FAERS Safety Report 22045888 (Version 1)
Quarter: 2023Q1

REPORT INFORMATION
  Report Type: Spontaneous
  Country: US (occurrence: None)
  Receive Date: 20230227
  Receipt Date: 20230227
  Transmission Date: 20230417
  Serious: Yes (Hospitalization)
  Sender: FDA-Public Use
  Company Number: None

PATIENT
  Sex: Female

DRUGS (2)
  1. TADALAFIL [Suspect]
     Active Substance: TADALAFIL
     Indication: Pulmonary arterial hypertension
     Dosage: FREQUENCY : DAILY;?
     Route: 048
     Dates: start: 20210604
  2. VELETRI [Suspect]
     Active Substance: EPOPROSTENOL

REACTIONS (7)
  - Flushing [None]
  - Oedema [None]
  - Decreased appetite [None]
  - Erythema [None]
  - Face oedema [None]
  - Depression [None]
  - Scleroderma [None]
